FAERS Safety Report 19802624 (Version 1)
Quarter: 2021Q3

REPORT INFORMATION
  Report Type: Spontaneous
  Country: US (occurrence: US)
  Receive Date: 20210908
  Receipt Date: 20210908
  Transmission Date: 20211014
  Serious: Yes (Hospitalization)
  Sender: FDA-Public Use
  Company Number: None

PATIENT
  Age: 14 Year
  Sex: Female
  Weight: 89.1 kg

DRUGS (6)
  1. VENLAFAXINE 150 MG PROLONGED?RELEASE CAPSULES, HARD [Concomitant]
     Active Substance: VENLAFAXINE HYDROCHLORIDE
  2. BIOTIN [Concomitant]
     Active Substance: BIOTIN
  3. FEXOFENADINE 180 MG [Suspect]
     Active Substance: FEXOFENADINE HYDROCHLORIDE
     Indication: SEASONAL ALLERGY
     Dates: start: 20200501, end: 20210401
  4. VYVANSE [Concomitant]
     Active Substance: LISDEXAMFETAMINE DIMESYLATE
  5. BUSPIRONE 10 MG BID [Concomitant]
  6. VIT D + CALCIUM (CALCIUM GLUCONATE\CALCIUM LACTATE\ERGOCALCIFEROL) [Concomitant]
     Active Substance: CALCIUM GLUCONATE\CALCIUM LACTATE\ERGOCALCIFEROL

REACTIONS (3)
  - Suicide attempt [None]
  - Anxiety [None]
  - Nervousness [None]

NARRATIVE: CASE EVENT DATE: 20201213
